FAERS Safety Report 9045770 (Version 2)
Quarter: 2013Q2

REPORT INFORMATION
  Report Type: Spontaneous
  Country: IT (occurrence: IT)
  Receive Date: 20130131
  Receipt Date: 20130419
  Transmission Date: 20140414
  Serious: Yes (Hospitalization)
  Sender: FDA-Public Use
  Company Number: IT-ABBOTT-13P-083-1039346-00

PATIENT
  Age: 73 Year
  Sex: Male
  Weight: 80 kg

DRUGS (4)
  1. KLACID [Suspect]
     Indication: AMOEBIC DYSENTERY
     Dates: start: 2008
  2. KLACID [Suspect]
     Dosage: TOTAL
     Route: 048
     Dates: start: 20120918, end: 20120918
  3. RACECADOTRIL [Suspect]
     Indication: DYSENTERY
     Dosage: TOTAL
     Route: 048
     Dates: start: 20120918, end: 20120918
  4. OXYGEN [Concomitant]
     Indication: CHRONIC OBSTRUCTIVE PULMONARY DISEASE

REACTIONS (4)
  - Tongue oedema [Recovered/Resolved]
  - Pruritus generalised [Recovered/Resolved]
  - Tongue oedema [Recovered/Resolved]
  - Pruritus generalised [Recovered/Resolved]
